FAERS Safety Report 7938234-1 (Version None)
Quarter: 2011Q4

REPORT INFORMATION
  Report Type: 
  Country: None (occurrence: None)
  Receive Date: 20111123
  Receipt Date: 20111117
  Transmission Date: 20120403
  Serious: Yes (Other)
  Sender: FDA-Public Use
  Company Number: CHPA2011US016045

PATIENT
  Age: 77 Year
  Sex: Female

DRUGS (1)
  1. MICONAZOLE NITRATE [Suspect]
     Indication: LIMB DISCOMFORT
     Dosage: 1 SPRAY, ONCE/SINGLE
     Route: 061
     Dates: start: 20111110, end: 20111110

REACTIONS (3)
  - SKIN DISCOLOURATION [None]
  - THERMAL BURN [None]
  - OFF LABEL USE [None]
